FAERS Safety Report 13409515 (Version 4)
Quarter: 2022Q4

REPORT INFORMATION
  Report Type: Spontaneous
  Country: US (occurrence: US)
  Receive Date: 20170406
  Receipt Date: 20221227
  Transmission Date: 20230113
  Serious: No
  Sender: FDA-Public Use
  Company Number: US-JNJFOC-20170225851

PATIENT
  Age: 14 Year
  Sex: Male

DRUGS (8)
  1. RISPERDAL [Suspect]
     Active Substance: RISPERIDONE
     Indication: Abnormal behaviour
     Dosage: VARYING DOSES OF 0.25 MG, 0.5MG, 1 MG AND 2 MG
     Route: 048
     Dates: start: 20001101
  2. RISPERDAL [Suspect]
     Active Substance: RISPERIDONE
     Indication: Oppositional defiant disorder
     Dosage: THRICE A DAY WITH VARYING DOSAGE 1MG AND 2 MG
     Route: 048
     Dates: start: 20050506
  3. RISPERDAL [Suspect]
     Active Substance: RISPERIDONE
     Indication: Delusion
     Dosage: VARYING DOSES 0.25 MG, 0.5MG, 1 MG AND 2 MG
     Route: 048
     Dates: end: 20051012
  4. RISPERDAL [Suspect]
     Active Substance: RISPERIDONE
     Route: 048
     Dates: start: 20060602
  5. RISPERIDONE [Suspect]
     Active Substance: RISPERIDONE
     Indication: Abnormal behaviour
     Dosage: VARYING DOSES OF 0.5 MG AND 1 MG
     Route: 048
     Dates: start: 20010305, end: 20050511
  6. RISPERIDONE [Suspect]
     Active Substance: RISPERIDONE
     Indication: Oppositional defiant disorder
     Route: 048
     Dates: start: 2000, end: 2007
  7. RISPERIDONE [Suspect]
     Active Substance: RISPERIDONE
     Indication: Delusion
  8. RISPERDAL [Suspect]
     Active Substance: RISPERIDONE
     Indication: Product used for unknown indication
     Route: 048

REACTIONS (3)
  - Emotional distress [Unknown]
  - Gynaecomastia [Unknown]
  - Off label use [Unknown]

NARRATIVE: CASE EVENT DATE: 20050506
